FAERS Safety Report 5052243-4 (Version None)
Quarter: 2006Q3

REPORT INFORMATION
  Report Type: 
  Country: None (occurrence: None)
  Receive Date: 20060717
  Receipt Date: 20060629
  Transmission Date: 20061208
  Serious: Yes (Life-Threatening, Hospitalization)
  Sender: FDA-Public Use
  Company Number: PHBS2006BE09744

PATIENT
  Sex: Female

DRUGS (1)
  1. ZADITEN [Suspect]

REACTIONS (2)
  - HEPATIC FAILURE [None]
  - HEPATITIS TOXIC [None]
